FAERS Safety Report 6814867-0 (Version None)
Quarter: 2010Q3

REPORT INFORMATION
  Report Type: 
  Country: None (occurrence: None)
  Receive Date: 20100702
  Receipt Date: 20100621
  Transmission Date: 20110219
  Serious: Yes (Hospitalization)
  Sender: FDA-Public Use
  Company Number: B0663368A

PATIENT
  Age: 47 Year
  Sex: Female

DRUGS (5)
  1. QUETIAPINE [Suspect]
     Indication: PRODUCT USED FOR UNKNOWN INDICATION
     Route: 065
  2. LAMIVUDINE-HIV [Suspect]
     Indication: HIV INFECTION
     Dosage: 300MG PER DAY
     Route: 065
  3. RITONAVIR [Suspect]
     Dosage: 100MG PER DAY
  4. ATAZANAVIR [Suspect]
     Dosage: 350MG PER DAY
  5. TENOFOVIR [Suspect]
     Dosage: 245MG PER DAY

REACTIONS (6)
  - COMA [None]
  - COMA SCALE ABNORMAL [None]
  - DRUG INTERACTION [None]
  - HYPOTENSION [None]
  - PNEUMONIA [None]
  - SINUS TACHYCARDIA [None]
